FAERS Safety Report 8171401-3 (Version None)
Quarter: 2012Q1

REPORT INFORMATION
  Report Type: 
  Country: None (occurrence: None)
  Receive Date: 20120228
  Receipt Date: 20120224
  Transmission Date: 20120608
  Serious: Yes (Life-Threatening)
  Sender: FDA-Public Use
  Company Number: GB-GLAXOSMITHKLINE-B0782693A

PATIENT
  Sex: Female
  Weight: 57 kg

DRUGS (4)
  1. SEREVENT [Concomitant]
  2. ALBUTEROL [Concomitant]
  3. UNKNOWN MEDICATION [Concomitant]
  4. NICOTINE [Suspect]
     Indication: EX-TOBACCO USER
     Dosage: 4MG PER DAY
     Route: 002
     Dates: start: 20120107

REACTIONS (6)
  - SWOLLEN TONGUE [None]
  - ANAPHYLACTIC SHOCK [None]
  - LIP SWELLING [None]
  - ANAPHYLACTIC REACTION [None]
  - PARAESTHESIA ORAL [None]
  - PHARYNGEAL OEDEMA [None]
